FAERS Safety Report 24367469 (Version 2)
Quarter: 2024Q4

REPORT INFORMATION
  Report Type: Spontaneous
  Country: US (occurrence: US)
  Receive Date: 20240926
  Receipt Date: 20241014
  Transmission Date: 20250115
  Serious: No
  Sender: ABBVIE
  Company Number: US-ABBVIE-5928641

PATIENT
  Sex: Male
  Weight: 79 kg

DRUGS (2)
  1. IMBRUVICA [Suspect]
     Active Substance: IBRUTINIB
     Indication: Chronic lymphocytic leukaemia
     Dosage: FORM STRENGTH:  240 MILLIGRAM
     Route: 048
     Dates: start: 2009, end: 2019
  2. IMBRUVICA [Suspect]
     Active Substance: IBRUTINIB
     Indication: Chronic lymphocytic leukaemia
     Route: 048
     Dates: start: 2019

REACTIONS (3)
  - Tooth extraction [Recovered/Resolved]
  - Prostatic specific antigen increased [Unknown]
  - Contusion [Unknown]

NARRATIVE: CASE EVENT DATE: 20190101
